FAERS Safety Report 5591154-2 (Version None)
Quarter: 2008Q1

REPORT INFORMATION
  Report Type: 
  Country: None (occurrence: None)
  Receive Date: 20080115
  Receipt Date: 20080110
  Transmission Date: 20080703
  Serious: Yes (Hospitalization)
  Sender: FDA-Public Use
  Company Number: TR-AVENTIS-200721730GDDC

PATIENT
  Age: 18 Year
  Sex: Female
  Weight: 40.9 kg

DRUGS (15)
  1. DOCETAXEL [Suspect]
     Route: 042
     Dates: start: 20071218, end: 20071218
  2. CISPLATIN [Suspect]
     Route: 042
     Dates: start: 20071218, end: 20071218
  3. FLUOROURACIL [Suspect]
     Route: 042
     Dates: start: 20071218, end: 20071222
  4. KYTRIL                             /01178101/ [Concomitant]
     Route: 042
     Dates: start: 20071219, end: 20071226
  5. UNKNOWN DRUG [Concomitant]
     Dosage: DOSE: 200-400
     Route: 048
     Dates: start: 20071221
  6. DUPHALAC                           /00163401/ [Concomitant]
     Route: 048
     Dates: start: 20071223
  7. DEKORT [Concomitant]
     Route: 042
     Dates: start: 20071219, end: 20071219
  8. KLACID                             /00984601/ [Concomitant]
     Route: 048
     Dates: start: 20071001
  9. NASONEX [Concomitant]
     Route: 045
  10. DELTACORTIL [Concomitant]
     Route: 048
     Dates: start: 20071022, end: 20071201
  11. DUOCID [Concomitant]
     Route: 042
     Dates: start: 20071022, end: 20071201
  12. DIKLORON [Concomitant]
     Dosage: DOSE: IM OR IV
     Dates: start: 20071022, end: 20071201
  13. MAJEZIK [Concomitant]
     Route: 048
     Dates: start: 20071022, end: 20071201
  14. OTRIVINE [Concomitant]
     Route: 045
     Dates: start: 20071022, end: 20071201
  15. EKSOFED                            /00076302/ [Concomitant]
     Route: 048
     Dates: start: 20071022, end: 20071201

REACTIONS (2)
  - FEBRILE NEUTROPENIA [None]
  - PROCTALGIA [None]
